FAERS Safety Report 9096481 (Version 1)
Quarter: 2013Q1

REPORT INFORMATION
  Report Type: Spontaneous
  Country: DK (occurrence: None)
  Receive Date: 20130124
  Receipt Date: 20130124
  Transmission Date: 20140127
  Serious: Yes (Other)
  Sender: FDA-Public Use
  Company Number: 2013MA000561

PATIENT
  Sex: Male

DRUGS (4)
  1. BISOPROLOL FUMARATE AND HYDROCHLOROTHIAZIDE TABLETS, 2.5 MG/6.25 MG (PUREPAC) (GALENIC/BISOPROLOL/HYDROCHLOROTHIAZIDE/) [Suspect]
     Indication: HEART RATE IRREGULAR
  2. LOSARTAN POTASSIUM [Suspect]
     Indication: AORTIC ANEURYSM
  3. BUTALBITAL, ASPIRIN (ACETYLSALICYLIC ACID) AND CAFFEINE TABLETS USP 50MG/325MG/40MG (AELLC) (BUTALBITAL, ASPIRIN AND CAFFEINE) [Suspect]
     Indication: PRODUCT USED FOR UNKNOWN INDICATION
  4. BENDROFLUMETHIAZIDE [Suspect]
     Indication: PRODUCT USED FOR UNKNOWN INDICATION

REACTIONS (7)
  - Cardiac failure [None]
  - Dyspnoea [None]
  - Abdominal distension [None]
  - Aneurysm [None]
  - Blood pressure diastolic increased [None]
  - Transient ischaemic attack [None]
  - Drug interaction [None]
